FAERS Safety Report 23515891 (Version 2)
Quarter: 2024Q1

REPORT INFORMATION
  Report Type: 
  Country: None (occurrence: None)
  Receive Date: 20240213
  Receipt Date: 20240213
  Transmission Date: 20240410
  Serious: No
  Sender: FDA-Public Use
  Company Number: JP-CHUGAI-2024003466AA

PATIENT

DRUGS (2)
  1. AVASTIN [Suspect]
     Active Substance: BEVACIZUMAB
     Dates: start: 20230725, end: 20240131
  2. TECENTRIQ [Suspect]
     Active Substance: ATEZOLIZUMAB
     Dates: start: 20230725, end: 20240131

REACTIONS (1)
  - Liver disorder [None]

NARRATIVE: CASE EVENT DATE: 20240131
